FAERS Safety Report 5698244-4 (Version None)
Quarter: 2008Q2

REPORT INFORMATION
  Report Type: 
  Country: None (occurrence: None)
  Receive Date: 20080408
  Receipt Date: 20080327
  Transmission Date: 20081010
  Serious: Yes (Other)
  Sender: FDA-Public Use
  Company Number: US-PFIZER INC-2008027595

PATIENT
  Sex: Male
  Weight: 72.6 kg

DRUGS (5)
  1. LYRICA [Suspect]
     Indication: NEUROPATHY PERIPHERAL
     Dates: start: 20071201, end: 20080301
  2. LYRICA [Suspect]
     Indication: SURGERY
  3. LISINOPRIL [Concomitant]
  4. HYTRIN [Concomitant]
  5. OPHTHALMOLOGICALS [Concomitant]

REACTIONS (4)
  - CATARACT [None]
  - FATIGUE [None]
  - PAIN [None]
  - SOMNOLENCE [None]
